FAERS Safety Report 5129997-1 (Version None)
Quarter: 2006Q4

REPORT INFORMATION
  Report Type: 
  Country: None (occurrence: None)
  Receive Date: 20061013
  Receipt Date: 20061002
  Transmission Date: 20070319
  Serious: Yes (Hospitalization, Other)
  Sender: FDA-Public Use
  Company Number: 2006119798

PATIENT
  Age: 16 Year
  Sex: Female
  Weight: 45 kg

DRUGS (8)
  1. ZITHROMAX [Suspect]
     Indication: HERPES OPHTHALMIC
     Dosage: 500 MG (250 MG, INTERVAL: EVERY DAY)
     Dates: start: 20060601, end: 20061001
  2. BETAMETHASONE [Suspect]
     Dosage: 40 MG (1 IN 1 D)
  3. METOPIMAZINE (METOPIMAZINE) [Suspect]
  4. CLINDAMYCIN HYDROCHLORIDE [Suspect]
     Indication: HERPES OPHTHALMIC
  5. PYRIMETHAMINE TAB [Concomitant]
  6. ACIDE FOLIQUE (FOLIC ACID) [Concomitant]
  7. POTASSIUM CHLORURE  (POTASSIUM) [Concomitant]
  8. VALACICLOVIR CHLORHYDRATE(VALACICLOVIR HYDROCHLORIDE) [Concomitant]

REACTIONS (15)
  - ABNORMAL BEHAVIOUR [None]
  - BALANCE DISORDER [None]
  - CONFUSIONAL STATE [None]
  - DIARRHOEA [None]
  - EXTRAPYRAMIDAL DISORDER [None]
  - HALLUCINATION [None]
  - HEADACHE [None]
  - HEARING IMPAIRED [None]
  - MUSCULOSKELETAL STIFFNESS [None]
  - NAUSEA [None]
  - NERVOUS SYSTEM DISORDER [None]
  - OVERDOSE [None]
  - SOMNOLENCE [None]
  - SPEECH DISORDER [None]
  - VISUAL ACUITY REDUCED [None]
